FAERS Safety Report 7197584-X (Version None)
Quarter: 2010Q4

REPORT INFORMATION
  Report Type: 
  Country: None (occurrence: None)
  Receive Date: 20101227
  Receipt Date: 20101217
  Transmission Date: 20110411
  Serious: Yes (Hospitalization)
  Sender: FDA-Public Use
  Company Number: US-ELI_LILLY_AND_COMPANY-US201010004777

PATIENT
  Sex: Male
  Weight: 34.3 kg

DRUGS (2)
  1. HUMATROPE [Suspect]
     Indication: GROWTH RETARDATION
     Dosage: 1.1 MG, EACH EVENING
     Route: 058
     Dates: start: 20100601
  2. INSULIN [Concomitant]

REACTIONS (2)
  - HYPERGLYCAEMIA [None]
  - INFECTIVE PULMONARY EXACERBATION OF CYSTIC FIBROSIS [None]
